FAERS Safety Report 4509444-0 (Version None)
Quarter: 2004Q4

REPORT INFORMATION
  Report Type: 
  Country: None (occurrence: None)
  Receive Date: 20041025
  Receipt Date: 20040406
  Transmission Date: 20050328
  Serious: Yes (Hospitalization)
  Sender: FDA-Public Use
  Company Number: US-JNJFOC-20040202322

PATIENT
  Age: 47 Year
  Sex: Male
  Weight: 68.9467 kg

DRUGS (3)
  1. REMICADE [Suspect]
     Indication: CROHN'S DISEASE
     Dosage: 400 MG, INTRAVENOUS
     Route: 042
     Dates: start: 20031022
  2. REMICADE [Suspect]
     Indication: CROHN'S DISEASE
     Dosage: 400 MG, INTRAVENOUS
     Route: 042
     Dates: start: 20031123
  3. PREDNISONE (TABLETS) PREDNISONE [Concomitant]

REACTIONS (3)
  - CHEST DISCOMFORT [None]
  - FLUSHING [None]
  - HYPERHIDROSIS [None]
